FAERS Safety Report 16583217 (Version 1)
Quarter: 2019Q3

REPORT INFORMATION
  Report Type: Spontaneous
  Country: DE (occurrence: DE)
  Receive Date: 20190717
  Receipt Date: 20190717
  Transmission Date: 20191004
  Serious: No
  Sender: FDA-Public Use
  Company Number: DE-LUPIN PHARMACEUTICALS INC.-2019-03384

PATIENT
  Sex: Male

DRUGS (1)
  1. SILDENAFIL-HORMOSAN 100 MG FILMTABLETTEN [Suspect]
     Active Substance: SILDENAFIL CITRATE
     Indication: PRODUCT USED FOR UNKNOWN INDICATION
     Dosage: UNK
     Route: 065
     Dates: start: 20190509, end: 201905

REACTIONS (2)
  - Drug ineffective [Unknown]
  - Product counterfeit [Unknown]

NARRATIVE: CASE EVENT DATE: 201905
